FAERS Safety Report 9681499 (Version 1)
Quarter: 2013Q4

REPORT INFORMATION
  Report Type: Spontaneous
  Country: DE (occurrence: DE)
  Receive Date: 20131111
  Receipt Date: 20131111
  Transmission Date: 20140711
  Serious: Yes (Other)
  Sender: FDA-Public Use
  Company Number: DE-PFIZER INC-2013317512

PATIENT
  Age: 17 Year
  Sex: Male

DRUGS (2)
  1. QUETIAPIN PFIZER [Suspect]
     Indication: SCHIZOPHRENIA
     Dosage: UNK
  2. ZELDOX [Suspect]
     Dosage: UNK

REACTIONS (6)
  - Suicidal behaviour [Recovering/Resolving]
  - Depressed mood [Recovering/Resolving]
  - Restlessness [Recovering/Resolving]
  - Screaming [Recovering/Resolving]
  - Drug intolerance [Recovering/Resolving]
  - Weight increased [Unknown]
